FAERS Safety Report 11599286 (Version 1)
Quarter: 2015Q3

REPORT INFORMATION
  Report Type: Spontaneous
  Country: US (occurrence: US)
  Receive Date: 20150916
  Receipt Date: 20150916
  Transmission Date: 20151125
  Serious: No
  Sender: FDA-Public Use
  Company Number: US-ELI_LILLY_AND_COMPANY-US200711006427

PATIENT
  Age: 52 Year
  Sex: Female

DRUGS (2)
  1. ENBREL [Concomitant]
     Active Substance: ETANERCEPT
  2. FORTEO [Suspect]
     Active Substance: TERIPARATIDE
     Dosage: UNK D/F, UNKNOWN
     Dates: start: 20071121

REACTIONS (2)
  - Nasopharyngitis [Unknown]
  - Rheumatoid arthritis [Not Recovered/Not Resolved]

NARRATIVE: CASE EVENT DATE: 200711
